FAERS Safety Report 18183898 (Version 3)
Quarter: 2020Q4

REPORT INFORMATION
  Report Type: Spontaneous
  Country: US (occurrence: US)
  Receive Date: 20200823
  Receipt Date: 20201014
  Transmission Date: 20210113
  Serious: No
  Sender: FDA-Public Use
  Company Number: US-BIOGEN-2020BI00914296

PATIENT
  Sex: Female

DRUGS (18)
  1. AVONEX [Suspect]
     Active Substance: INTERFERON BETA-1A
     Indication: MULTIPLE SCLEROSIS
     Route: 065
     Dates: start: 201010, end: 20110507
  2. AVONEX [Suspect]
     Active Substance: INTERFERON BETA-1A
  3. AVONEX [Suspect]
     Active Substance: INTERFERON BETA-1A
  4. FLEXERIL [Concomitant]
     Active Substance: CYCLOBENZAPRINE HYDROCHLORIDE
     Route: 065
  5. AVONEX [Suspect]
     Active Substance: INTERFERON BETA-1A
  6. GABAPENTIN. [Concomitant]
     Active Substance: GABAPENTIN
     Route: 065
  7. AVONEX [Suspect]
     Active Substance: INTERFERON BETA-1A
  8. AVONEX [Suspect]
     Active Substance: INTERFERON BETA-1A
  9. AVONEX [Suspect]
     Active Substance: INTERFERON BETA-1A
  10. AVONEX [Suspect]
     Active Substance: INTERFERON BETA-1A
  11. AVONEX [Suspect]
     Active Substance: INTERFERON BETA-1A
  12. AVONEX [Suspect]
     Active Substance: INTERFERON BETA-1A
  13. LUNESTA [Concomitant]
     Active Substance: ESZOPICLONE
     Route: 065
  14. AVONEX [Suspect]
     Active Substance: INTERFERON BETA-1A
  15. OXYBUTYNIN CHLORIDE. [Concomitant]
     Active Substance: OXYBUTYNIN CHLORIDE
     Route: 065
  16. SOLU-MEDROL [Concomitant]
     Active Substance: METHYLPREDNISOLONE SODIUM SUCCINATE
     Route: 065
  17. AVONEX [Suspect]
     Active Substance: INTERFERON BETA-1A
  18. AVONEX [Suspect]
     Active Substance: INTERFERON BETA-1A

REACTIONS (7)
  - Multiple sclerosis [Unknown]
  - Bladder dysfunction [Unknown]
  - Night sweats [Unknown]
  - Tinnitus [Unknown]
  - Increased tendency to bruise [Unknown]
  - Drug ineffective [Unknown]
  - Arthralgia [Unknown]
